FAERS Safety Report 11648435 (Version 1)
Quarter: 2015Q4

REPORT INFORMATION
  Report Type: Spontaneous
  Country: US (occurrence: US)
  Receive Date: 20151021
  Receipt Date: 20151021
  Transmission Date: 20160304
  Serious: Yes (Other)
  Sender: FDA-Public Use
  Company Number: US-PFIZER INC-2015338234

PATIENT
  Sex: Female

DRUGS (2)
  1. ADVIL [Suspect]
     Active Substance: IBUPROFEN
     Indication: INSOMNIA
  2. ADVIL [Suspect]
     Active Substance: IBUPROFEN
     Indication: OSTEOPOROSIS
     Dosage: ONE OR TWO A DAY

REACTIONS (3)
  - Glaucoma [Unknown]
  - Product use issue [Unknown]
  - Condition aggravated [Unknown]
